FAERS Safety Report 4845188-3 (Version None)
Quarter: 2005Q4

REPORT INFORMATION
  Report Type: 
  Country: None (occurrence: None)
  Receive Date: 20051129
  Receipt Date: 20051111
  Transmission Date: 20060501
  Serious: Yes (Other)
  Sender: FDA-Public Use
  Company Number: USA0510111809

PATIENT
  Age: 8 Year
  Sex: Male
  Weight: 30.4 kg

DRUGS (2)
  1. STRATTERA [Suspect]
     Indication: ATTENTION DEFICIT/HYPERACTIVITY DISORDER
     Dosage: 25 MG, DAILY (1/D), ORAL
     Route: 048
     Dates: start: 20050825, end: 20050907
  2. ADDERALL (AMFETAMINE ASPARTATE, AMFETAMINE SULFATE, DEXAMFETAMINE SACC [Concomitant]

REACTIONS (4)
  - HALLUCINATION, VISUAL [None]
  - REFUSAL OF TREATMENT BY PATIENT [None]
  - SELF-INJURIOUS IDEATION [None]
  - SUICIDAL IDEATION [None]
